FAERS Safety Report 17189680 (Version 1)
Quarter: 2019Q4

REPORT INFORMATION
  Report Type: Spontaneous
  Country: GB (occurrence: GB)
  Receive Date: 20191223
  Receipt Date: 20191223
  Transmission Date: 20200122
  Serious: Yes (Hospitalization, Other)
  Sender: FDA-Public Use
  Company Number: GB-ALKEM LABORATORIES LIMITED-GB-ALKEM-2019-10912

PATIENT
  Age: 27 Year
  Sex: Female

DRUGS (3)
  1. PREGABALIN. [Suspect]
     Active Substance: PREGABALIN
     Dosage: 300 MG, UNK
     Route: 065
  2. PREGABALIN. [Suspect]
     Active Substance: PREGABALIN
     Indication: PAIN
     Dosage: 150 MILLIGRAM, OD
     Route: 065
     Dates: start: 2012
  3. PREGABALIN. [Suspect]
     Active Substance: PREGABALIN
     Dosage: 900 MILLIGRAM, OD
     Route: 065
     Dates: start: 2015

REACTIONS (8)
  - Intentional self-injury [Recovered/Resolved]
  - Major depression [Recovered/Resolved]
  - Depression [Recovered/Resolved]
  - Personality change [Recovered/Resolved]
  - Hallucination [Recovered/Resolved]
  - Prescribed overdose [Unknown]
  - Suicide attempt [Recovered/Resolved]
  - Feeling abnormal [Recovered/Resolved]
